FAERS Safety Report 8351901-3 (Version None)
Quarter: 2012Q2

REPORT INFORMATION
  Report Type: 
  Country: None (occurrence: None)
  Receive Date: 20120511
  Receipt Date: 20120508
  Transmission Date: 20120825
  Serious: No
  Sender: FDA-Public Use
  Company Number: US-PFIZER INC-2012100032

PATIENT
  Sex: Male

DRUGS (4)
  1. CELEBREX [Suspect]
     Indication: ROTATOR CUFF SYNDROME
     Dosage: 200 MG, 1X/DAY, 1
     Route: 048
     Dates: start: 20120401, end: 20120401
  2. BENICAR [Concomitant]
     Dosage: 20 MG, DAILY, 1 TABLET
     Route: 048
  3. NITROGLYCERIN [Concomitant]
     Dosage: 0.4 MG, AS NEEDED
     Route: 060
  4. PROTONIX [Concomitant]
     Dosage: 40 MG, DAILY, 1 TABLET
     Route: 048

REACTIONS (1)
  - RASH [None]
